FAERS Safety Report 17755613 (Version 3)
Quarter: 2020Q2

REPORT INFORMATION
  Report Type: Spontaneous
  Country: US (occurrence: US)
  Receive Date: 20200507
  Receipt Date: 20200623
  Transmission Date: 20200714
  Serious: Yes (Other)
  Sender: FDA-Public Use
  Company Number: US-PFIZER INC-2020179186

PATIENT
  Age: 72 Year
  Sex: Male
  Weight: 92.99 kg

DRUGS (3)
  1. INLYTA [Suspect]
     Active Substance: AXITINIB
     Dosage: 5 MG
     Route: 048
  2. INLYTA [Suspect]
     Active Substance: AXITINIB
     Indication: RENAL CANCER
     Dosage: UNK DOSAGE 5MG/DOSAGE STRENGTH (6 MG) REQUESTED; DIRECTIONS/DOSING INSTRUCTIONS: 1 T PO (ORAL) BID (
     Route: 048
  3. INLYTA [Suspect]
     Active Substance: AXITINIB
     Dosage: 5 MG, 2X/DAY
     Route: 048
     Dates: start: 20200518, end: 20200529

REACTIONS (8)
  - Blood pressure increased [Recovering/Resolving]
  - Malaise [Unknown]
  - Fatigue [Unknown]
  - Cardiac disorder [Unknown]
  - Near death experience [Unknown]
  - Dyspnoea [Recovering/Resolving]
  - Product prescribing error [Unknown]
  - Pain [Unknown]
